FAERS Safety Report 5588689-5 (Version None)
Quarter: 2008Q1

REPORT INFORMATION
  Report Type: 
  Country: None (occurrence: None)
  Receive Date: 20080111
  Receipt Date: 20080109
  Transmission Date: 20080703
  Serious: Yes (Other)
  Sender: FDA-Public Use
  Company Number: A0702184A

PATIENT
  Age: 34 Year
  Sex: Female

DRUGS (4)
  1. BUPROPION HYDROCHLORIDE [Suspect]
     Dosage: 300MG PER DAY
     Route: 048
     Dates: start: 20071001
  2. WELLBUTRIN XL [Suspect]
     Indication: DRUG USE FOR UNKNOWN INDICATION
     Dosage: 300MG PER DAY
     Route: 048
  3. LORAZEPAM [Concomitant]
  4. METHOCARBAMOL [Concomitant]

REACTIONS (9)
  - ANOREXIA [None]
  - ANXIETY [None]
  - CYSTITIS [None]
  - HEADACHE [None]
  - INSOMNIA [None]
  - MUSCLE ATROPHY [None]
  - MUSCLE SPASMS [None]
  - NAUSEA [None]
  - TREMOR [None]
